FAERS Safety Report 5830697-0 (Version None)
Quarter: 2008Q3

REPORT INFORMATION
  Report Type: 
  Country: None (occurrence: None)
  Receive Date: 20080801
  Receipt Date: 20071012
  Transmission Date: 20090109
  Serious: No
  Sender: FDA-Public Use
  Company Number: US-BRISTOL-MYERS SQUIBB COMPANY-13940275

PATIENT
  Age: 78 Year
  Sex: Male

DRUGS (4)
  1. COUMADIN [Suspect]
     Indication: TRANSIENT ISCHAEMIC ATTACK
     Dosage: ADJUSTED TO 5MG FOUR TIMES A WEEK.
     Route: 048
     Dates: start: 19970101
  2. COUMADIN [Suspect]
     Indication: CARDIAC DISORDER
     Dosage: ADJUSTED TO 5MG FOUR TIMES A WEEK.
     Route: 048
     Dates: start: 19970101
  3. OXYTROL [Suspect]
     Indication: URINARY TRACT DISORDER
     Dosage: 1 PATCH, 3.9MG
     Route: 062
     Dates: start: 20070907
  4. PLAVIX [Concomitant]

REACTIONS (1)
  - INTERNATIONAL NORMALISED RATIO INCREASED [None]
